FAERS Safety Report 9696008 (Version 1)
Quarter: 2013Q4

REPORT INFORMATION
  Report Type: Spontaneous
  Country: US (occurrence: None)
  Receive Date: 20131115
  Receipt Date: 20131115
  Transmission Date: 20140711
  Serious: Yes (Life-Threatening, Hospitalization)
  Sender: FDA-Public Use
  Company Number: 2013P1020894

PATIENT
  Age: 8 Year
  Sex: Male
  Weight: 27 kg

DRUGS (1)
  1. LITHIUM [Suspect]
     Indication: OPPOSITIONAL DEFIANT DISORDER

REACTIONS (7)
  - Nephrogenic diabetes insipidus [None]
  - Renal failure acute [None]
  - Toxicity to various agents [None]
  - Ataxia [None]
  - Confusional state [None]
  - Nystagmus [None]
  - Haemodialysis [None]
